FAERS Safety Report 18641967 (Version 3)
Quarter: 2022Q3

REPORT INFORMATION
  Report Type: Spontaneous
  Country: JP (occurrence: JP)
  Receive Date: 20201221
  Receipt Date: 20220713
  Transmission Date: 20221027
  Serious: No
  Sender: FDA-Public Use
  Company Number: JP-GSKNCCC-CASE-01074948_AE-36299

PATIENT

DRUGS (1)
  1. NUCALA [Suspect]
     Active Substance: MEPOLIZUMAB
     Dosage: UNK
     Route: 058

REACTIONS (3)
  - Device failure [Unknown]
  - Device malfunction [Unknown]
  - Product complaint [Unknown]

NARRATIVE: CASE EVENT DATE: 20201101
